FAERS Safety Report 16213710 (Version 2)
Quarter: 2019Q2

REPORT INFORMATION
  Report Type: Spontaneous
  Country: US (occurrence: US)
  Receive Date: 20190418
  Receipt Date: 20190613
  Transmission Date: 20190711
  Serious: Yes (Death, Other)
  Sender: FDA-Public Use
  Company Number: US-PFIZER INC-2017460810

PATIENT
  Age: 84 Year
  Sex: Female
  Weight: 113.38 kg

DRUGS (25)
  1. FLUOXETINE HCL [Concomitant]
     Active Substance: FLUOXETINE HYDROCHLORIDE
     Indication: DEPRESSION
     Dosage: 20 MG, 1X/DAY (PM)
  2. PROBIOTICS [Concomitant]
     Active Substance: PROBIOTICS NOS
     Dosage: UNK, 1X/DAY
  3. OMEPRAZOLE. [Concomitant]
     Active Substance: OMEPRAZOLE
     Indication: ABDOMINAL DISCOMFORT
     Dosage: 20 MG, 1X/DAY (AM)
  4. BABY ASPIRIN [Concomitant]
     Active Substance: ASPIRIN
     Dosage: 162 MG, DAILY
  5. COENZYME Q10 [Concomitant]
     Active Substance: UBIDECARENONE
     Dosage: 100 MG, DAILY
  6. MAGNESIUM GLYCINATE [Concomitant]
     Active Substance: MAGNESIUM GLYCINATE
     Dosage: 400 MG, UNK (EVERY OTHER DAY)
  7. LEVOXYL [Concomitant]
     Active Substance: LEVOTHYROXINE SODIUM
     Indication: CEREBROVASCULAR ACCIDENT
     Dosage: 0.1 MG, 1X/DAY (AM) (1 DAILY 2 ON SUNDAY)
  8. HYDROCHLOROTHIAZIDE. [Concomitant]
     Active Substance: HYDROCHLOROTHIAZIDE
     Dosage: 25 MG, 1X/DAY (AM)
  9. SULFAZINE [Concomitant]
     Active Substance: SULFASALAZINE
     Dosage: 1000 MG, 2X/DAY (2 AFTER BREAKFAST/ 2 AFTER SUPPER )
  10. B6 [Concomitant]
     Active Substance: PYRIDOXINE HYDROCHLORIDE
     Dosage: 100 MG, 1X/DAY (AT NOON)
  11. PRESERVISION AREDS 2 [Concomitant]
     Active Substance: MINERALS\VITAMINS
     Dosage: UNK, 2X/DAY
  12. COZAAR [Concomitant]
     Active Substance: LOSARTAN POTASSIUM
     Indication: DIABETES MELLITUS
  13. FOLIC ACID. [Concomitant]
     Active Substance: FOLIC ACID
     Dosage: 400 MG, 1X/DAY (AT NOON)
  14. ZINC. [Concomitant]
     Active Substance: ZINC
     Dosage: 50 MG, 1X/DAY (AT NOON)
  15. LYRICA [Suspect]
     Active Substance: PREGABALIN
     Indication: NEUROPATHY PERIPHERAL
     Dosage: 75 MG, 1X/DAY (AT BEDTIME)
     Route: 048
  16. SPIRONOLACTONE. [Concomitant]
     Active Substance: SPIRONOLACTONE
     Dosage: 25 MG, 1X/DAY (AM)
  17. LEVOXYL [Concomitant]
     Active Substance: LEVOTHYROXINE SODIUM
     Indication: THYROID DISORDER
  18. SUCRALFATE. [Concomitant]
     Active Substance: SUCRALFATE
     Indication: ULCER
     Dosage: 1 G, 2X/DAY (AM/ PM)
  19. VITAMIN D [Concomitant]
     Active Substance: VITAMIN D NOS
     Dosage: UNK (50000, UNSPECIFIED UNIT EVERY OTHER WEEK)
  20. VITAMIN B12 [Concomitant]
     Active Substance: CYANOCOBALAMIN
     Dosage: 250 MG, 1X/DAY (AT NOON)
  21. CALCIUM 600 + D [Concomitant]
     Active Substance: CALCIUM\VITAMIN D
     Dosage: 600 MG, 2X/DAY (AM/PM)
  22. OMEGA 3 [Concomitant]
     Active Substance: OMEGA-3 FATTY ACIDS
     Dosage: UNK, 1X/DAY (AT NOON)
  23. COZAAR [Concomitant]
     Active Substance: LOSARTAN POTASSIUM
     Indication: BLOOD PRESSURE ABNORMAL
     Dosage: 50 MG, 1X/DAY (NOON)
  24. PRAVASTATIN SODIUM. [Concomitant]
     Active Substance: PRAVASTATIN SODIUM
     Indication: CARDIAC DISORDER
     Dosage: 20 MG, 1X/DAY (PM)
  25. VITAMIN C [Concomitant]
     Active Substance: ASCORBIC ACID
     Dosage: 500 MG, 1X/DAY (PM)

REACTIONS (4)
  - Pneumonia [Fatal]
  - Renal failure [Fatal]
  - Intestinal obstruction [Unknown]
  - Influenza [Unknown]

NARRATIVE: CASE EVENT DATE: 20190402
